FAERS Safety Report 22345063 (Version 1)
Quarter: 2023Q2

REPORT INFORMATION
  Report Type: Spontaneous
  Country: US (occurrence: US)
  Receive Date: 20230519
  Receipt Date: 20230519
  Transmission Date: 20230722
  Serious: Yes (Other)
  Sender: FDA-Public Use
  Company Number: US-TEVA-2023-US-2887218

PATIENT
  Sex: Female

DRUGS (1)
  1. ALBUTEROL SULFATE [Suspect]
     Active Substance: ALBUTEROL SULFATE
     Indication: Product used for unknown indication
     Route: 065
     Dates: end: 202305

REACTIONS (5)
  - Atrial fibrillation [Recovered/Resolved]
  - Mitral valve incompetence [Recovered/Resolved]
  - Pruritus [Recovered/Resolved]
  - Back pain [Recovered/Resolved]
  - Lactose intolerance [Recovered/Resolved]
